FAERS Safety Report 10964936 (Version 1)
Quarter: 2015Q1

REPORT INFORMATION
  Report Type: Spontaneous
  Country: US (occurrence: US)
  Receive Date: 20150330
  Receipt Date: 20150330
  Transmission Date: 20150721
  Serious: Yes (Death, Other)
  Sender: FDA-Public Use
  Company Number: US-TEVA-511297USA

PATIENT
  Age: 55 Year
  Sex: Male

DRUGS (2)
  1. COUMADIN [Suspect]
     Active Substance: WARFARIN SODIUM
     Route: 065
  2. WARFARIN [Suspect]
     Active Substance: WARFARIN

REACTIONS (9)
  - Eye haemorrhage [Unknown]
  - Myocardial haemorrhage [Unknown]
  - Haemorrhage [Unknown]
  - Spinal cord haemorrhage [Unknown]
  - Haemorrhage [Fatal]
  - Cerebral haemorrhage [Unknown]
  - Haemarthrosis [Unknown]
  - Muscle haemorrhage [Unknown]
  - Contusion [Unknown]
